FAERS Safety Report 8882817 (Version 1)
Quarter: 2012Q4

REPORT INFORMATION
  Report Type: 
  Country: NL (occurrence: MW)
  Receive Date: 20121105
  Receipt Date: 20121105
  Transmission Date: 20130627
  Serious: Yes (Death)
  Sender: FDA-Public Use
  Company Number: NL-JNJFOC-20121101398

PATIENT
  Age: 18 Month
  Weight: 12 kg

DRUGS (3)
  1. DOXORUBICIN [Suspect]
     Indication: NEPHROBLASTOMA
     Dosage: week 1, 5
     Route: 042
  2. VINCRISTINE [Suspect]
     Indication: NEPHROBLASTOMA
     Dosage: weekly
     Route: 042
  3. DACTINOMYCIN [Suspect]
     Indication: NEPHROBLASTOMA
     Dosage: week 1, 3,5
     Route: 042

REACTIONS (2)
  - Death [Fatal]
  - Off label use [Unknown]
